FAERS Safety Report 8471782-7 (Version None)
Quarter: 2012Q2

REPORT INFORMATION
  Report Type: 
  Country: None (occurrence: None)
  Receive Date: 20120627
  Receipt Date: 20120619
  Transmission Date: 20120825
  Serious: Yes (Life-Threatening, Hospitalization)
  Sender: FDA-Public Use
  Company Number: JP-JNJFOC-20111202003

PATIENT
  Sex: Male
  Weight: 74 kg

DRUGS (24)
  1. MICARDIS [Concomitant]
     Route: 048
  2. CYCLOSPORINE [Concomitant]
     Dates: start: 20110701
  3. SENNOSIDE [Concomitant]
     Route: 048
  4. NEUROTROPIN [Concomitant]
     Route: 048
  5. PREDNISOLONE SODIUM SUCCINATE INJ [Suspect]
     Route: 048
     Dates: start: 20111028, end: 20111228
  6. HUMULIN INSULIN [Concomitant]
     Route: 058
  7. MECOBALAMIN [Concomitant]
     Route: 048
  8. HEPARINOID [Concomitant]
     Indication: PSORIASIS
     Route: 061
  9. LIDOMEX [Concomitant]
     Indication: PSORIASIS
     Route: 061
  10. USTEKINUMAB [Suspect]
     Indication: PSORIASIS
     Route: 058
     Dates: start: 20110803, end: 20110803
  11. CYCLOSPORINE [Concomitant]
     Indication: PSORIASIS
     Dates: start: 20110706, end: 20110805
  12. LASIX [Concomitant]
     Route: 048
  13. GLIMEPIRIDE [Concomitant]
     Route: 048
  14. BROTIZOLAM [Concomitant]
     Route: 048
  15. BETAMETHASONE BUTYRATE [Concomitant]
     Indication: PSORIASIS
     Route: 061
  16. USTEKINUMAB [Suspect]
     Route: 058
     Dates: start: 20110706, end: 20110706
  17. PREDNISOLONE SODIUM SUCCINATE INJ [Suspect]
     Indication: PRODUCT USED FOR UNKNOWN INDICATION
     Route: 050
     Dates: start: 20111014, end: 20111027
  18. LEVEMIR [Concomitant]
     Route: 058
  19. ALLEGRA [Concomitant]
     Indication: PSORIASIS
     Route: 048
  20. HYDROCORTISONE BUTYRATE [Concomitant]
     Indication: PSORIASIS
     Route: 061
  21. KERATINAMIN [Concomitant]
     Indication: PSORIASIS
     Route: 061
  22. INSULIN [Concomitant]
     Route: 058
  23. REBAMIPIDE [Concomitant]
     Route: 048
  24. ETRETINATE [Concomitant]
     Dates: end: 20110701

REACTIONS (3)
  - CELLULITIS [None]
  - EOSINOPHILIC PNEUMONIA [None]
  - GASTRIC ULCER [None]
